FAERS Safety Report 6174553-X (Version None)
Quarter: 2009Q2

REPORT INFORMATION
  Report Type: 
  Country: None (occurrence: None)
  Receive Date: 20090430
  Receipt Date: 20080721
  Transmission Date: 20091009
  Serious: No
  Sender: FDA-Public Use
  Company Number: US-ASTRAZENECA-2008UW15180

PATIENT
  Age: 82 Year
  Sex: Female
  Weight: 77.1 kg

DRUGS (5)
  1. NEXIUM [Suspect]
     Indication: PROPHYLAXIS AGAINST GASTROINTESTINAL ULCER
     Route: 048
     Dates: start: 20080401
  2. METOPROLOL TARTRATE [Concomitant]
  3. FELODIPINE [Concomitant]
  4. LESCOL XL [Concomitant]
  5. TRIAMTERENE [Concomitant]

REACTIONS (1)
  - INTERNATIONAL NORMALISED RATIO DECREASED [None]
